FAERS Safety Report 4911189-X (Version None)
Quarter: 2006Q1

REPORT INFORMATION
  Report Type: 
  Country: None (occurrence: None)
  Receive Date: 20060209
  Receipt Date: 20060120
  Transmission Date: 20060701
  Serious: No
  Sender: FDA-Public Use
  Company Number: GB200601004655

PATIENT
  Age: 18 Year
  Sex: Male

DRUGS (5)
  1. ZYPREXA [Suspect]
     Dosage: ORAL
     Route: 048
  2. CLOZAPINE [Concomitant]
  3. QUETIAPINE FUMARATE [Concomitant]
  4. CITALOPRAM (CITALOPRAM) [Concomitant]
  5. ZOPICLONE (ZOPICLONE) [Concomitant]

REACTIONS (1)
  - NEUTROPENIA [None]
